FAERS Safety Report 6538607-8 (Version None)
Quarter: 2010Q1

REPORT INFORMATION
  Report Type: 
  Country: None (occurrence: None)
  Receive Date: 20100113
  Receipt Date: 20100113
  Transmission Date: 20100710
  Serious: No
  Sender: FDA-Public Use
  Company Number: None

PATIENT
  Age: 30 Year
  Sex: Male
  Weight: 70.3075 kg

DRUGS (1)
  1. CIPROFLOXIN 500MG BAYER [Suspect]
     Indication: PROSTATITIS
     Dates: start: 20091010, end: 20091016

REACTIONS (15)
  - ABASIA [None]
  - ARTHROPATHY [None]
  - ECONOMIC PROBLEM [None]
  - IMPAIRED DRIVING ABILITY [None]
  - IMPAIRED WORK ABILITY [None]
  - INSOMNIA [None]
  - JOINT LOCK [None]
  - NIGHT SWEATS [None]
  - PRODUCT QUALITY ISSUE [None]
  - RETINAL INJURY [None]
  - SUICIDAL IDEATION [None]
  - TENDON DISORDER [None]
  - TENDONITIS [None]
  - TINNITUS [None]
  - VISUAL IMPAIRMENT [None]
